FAERS Safety Report 18673057 (Version 1)
Quarter: 2020Q4

REPORT INFORMATION
  Report Type: Spontaneous
  Country: AE (occurrence: AE)
  Receive Date: 20201229
  Receipt Date: 20201229
  Transmission Date: 20210114
  Serious: Yes (Hospitalization, Other)
  Sender: FDA-Public Use
  Company Number: AE-LUPIN PHARMACEUTICALS INC.-2020-10860

PATIENT
  Age: 26 Year
  Sex: Female
  Weight: 62 kg

DRUGS (2)
  1. DICLOFENAC [Suspect]
     Active Substance: DICLOFENAC
     Indication: BACK PAIN
     Dosage: UNK (TAKING FOR THE LAST 3 WEEKS)
     Route: 065
  2. CELECOXIB. [Suspect]
     Active Substance: CELECOXIB
     Indication: BACK PAIN
     Dosage: UNK (TAKING FOR THE LAST 3 WEEKS)
     Route: 065

REACTIONS (4)
  - Gastric ulcer [Recovered/Resolved]
  - Decubitus ulcer [Recovered/Resolved]
  - Gastric perforation [Recovered/Resolved]
  - Peritonitis [Recovered/Resolved]
